FAERS Safety Report 6470103-9 (Version None)
Quarter: 2009Q4

REPORT INFORMATION
  Report Type: 
  Country: None (occurrence: None)
  Receive Date: 20091203
  Receipt Date: 20080212
  Transmission Date: 20100525
  Serious: Yes (Hospitalization)
  Sender: FDA-Public Use
  Company Number: US-ELI_LILLY_AND_COMPANY-US200712002786

PATIENT
  Sex: Male

DRUGS (9)
  1. HUMALOG [Suspect]
     Dosage: 50 U, 2/D
  2. LANTUS [Concomitant]
  3. GLUCOPHAGE [Concomitant]
  4. ASPIRIN [Concomitant]
  5. PREVACID [Concomitant]
     Indication: GASTROOESOPHAGEAL REFLUX DISEASE
  6. PREDNISONE [Concomitant]
  7. ADVAIR DISKUS 100/50 [Concomitant]
  8. PROVENTIL /USA/ [Concomitant]
  9. COUGH SYRUP [Concomitant]

REACTIONS (13)
  - ASTHMA [None]
  - BLOOD GLUCOSE DECREASED [None]
  - BLOOD GLUCOSE INCREASED [None]
  - COUGH [None]
  - GASTROOESOPHAGEAL REFLUX DISEASE [None]
  - GLYCOSYLATED HAEMOGLOBIN INCREASED [None]
  - NASAL CONGESTION [None]
  - PNEUMONIA [None]
  - PULMONARY FIBROSIS [None]
  - SLEEP APNOEA SYNDROME [None]
  - SPUTUM ABNORMAL [None]
  - STENT PLACEMENT [None]
  - UPPER RESPIRATORY TRACT INFECTION [None]
